FAERS Safety Report 7448366-2 (Version None)
Quarter: 2011Q2

REPORT INFORMATION
  Report Type: 
  Country: None (occurrence: None)
  Receive Date: 20110429
  Receipt Date: 20100511
  Transmission Date: 20111010
  Serious: No
  Sender: FDA-Public Use
  Company Number: US-ASTRAZENECA-2010SE21695

PATIENT
  Sex: Female

DRUGS (2)
  1. CRESTOR [Suspect]
     Dosage: 3 DAYS PER WEEK
     Route: 048
  2. NEXIUM [Suspect]
     Route: 048

REACTIONS (3)
  - OESOPHAGEAL DISORDER [None]
  - EYE DISORDER [None]
  - DRUG DOSE OMISSION [None]
